FAERS Safety Report 18612823 (Version 3)
Quarter: 2021Q1

REPORT INFORMATION
  Report Type: Spontaneous
  Country: FR (occurrence: FR)
  Receive Date: 20201214
  Receipt Date: 20210225
  Transmission Date: 20210419
  Serious: Yes (Hospitalization, Other)
  Sender: FDA-Public Use
  Company Number: FR-PFIZER INC-2020247472

PATIENT
  Age: 69 Year
  Sex: Female
  Weight: 64.5 kg

DRUGS (26)
  1. AZITHROMYCIN ANHYDROUS. [Suspect]
     Active Substance: AZITHROMYCIN ANHYDROUS
     Dosage: 200 MG, 1X/DAY
     Route: 048
     Dates: start: 202004, end: 20200430
  2. ALLOPURINOL. [Suspect]
     Active Substance: ALLOPURINOL
     Indication: GOUT
     Dosage: 300 MG, DAILY
     Route: 048
     Dates: end: 20200518
  3. CHOLECALCIFEROL [Suspect]
     Active Substance: CHOLECALCIFEROL
     Indication: VITAMIN SUPPLEMENTATION
     Dosage: 1 DF, MONTHLY
     Route: 048
     Dates: start: 20200430, end: 20200513
  4. FLECAINIDE ACETATE. [Suspect]
     Active Substance: FLECAINIDE ACETATE
     Dosage: 100 MG, 1X/DAY  (BREAKABLE TABLET)
     Route: 048
  5. ATORVASTATIN [Concomitant]
     Active Substance: ATORVASTATIN
     Dosage: UNK
  6. PLAQUENIL [Suspect]
     Active Substance: HYDROXYCHLOROQUINE SULFATE
     Indication: CORONAVIRUS INFECTION
     Dosage: 400 MG, DAILY
     Route: 048
     Dates: start: 20200411, end: 20200423
  7. ARANESP [Concomitant]
     Active Substance: DARBEPOETIN ALFA
     Indication: ANAEMIA
     Dosage: 40 UG, WEEKLY
     Route: 058
     Dates: start: 202004, end: 20200518
  8. AZITHROMYCIN ANHYDROUS. [Suspect]
     Active Substance: AZITHROMYCIN ANHYDROUS
     Indication: CORONAVIRUS INFECTION
     Dosage: 250 MG, 1X/DAY
     Route: 048
     Dates: start: 20200411, end: 20200423
  9. ATORVASTATIN CALCIUM. [Suspect]
     Active Substance: ATORVASTATIN CALCIUM
     Indication: PROPHYLAXIS
     Dosage: 20 MG, DAILY
     Route: 048
     Dates: end: 20200519
  10. ROVAMYCINE [SPIRAMYCIN ADEPATE] [Suspect]
     Active Substance: SPIRAMYCIN ADIPATE
     Indication: LUNG DISORDER
     Dosage: 1 DF, 2X/DAY (CYCLIC EVERY 12 HOURS)
     Route: 042
     Dates: start: 20200405, end: 20200406
  11. CEFEPIME GERDA [Suspect]
     Active Substance: CEFEPIME HYDROCHLORIDE
     Indication: LUNG DISORDER
     Dosage: 1 G, 1X/DAY (CEFEPIME GERDA 1 G POWDER FOR SOLUTION FOR INJECTION (IM / IV))
     Route: 042
     Dates: start: 20200405, end: 20200406
  12. CALCIPARINE [Suspect]
     Active Substance: HEPARIN CALCIUM
     Indication: VASCULAR DISORDER PROPHYLAXIS
     Dosage: 1000 IU, 1X/DAY
     Route: 058
     Dates: start: 20200405, end: 20200406
  13. FLECAINE [Concomitant]
     Active Substance: FLECAINIDE
     Dosage: UNK
     Route: 048
  14. FUROSEMIDE. [Concomitant]
     Active Substance: FUROSEMIDE
     Indication: HYPERTENSION
     Dosage: 120 MG, DAILY
     Route: 048
  15. NOVORAPID [Concomitant]
     Active Substance: INSULIN ASPART
     Indication: TYPE 2 DIABETES MELLITUS
     Dosage: UNK, 1X/DAY
     Route: 058
  16. FOLIC ACID. [Suspect]
     Active Substance: FOLIC ACID
     Indication: VITAMIN SUPPLEMENTATION
     Dosage: 5 MG, 1X/DAY
     Route: 048
     Dates: start: 20200218, end: 20200430
  17. BACTRIM [Suspect]
     Active Substance: SULFAMETHOXAZOLE\TRIMETHOPRIM
     Indication: LUNG DISORDER
     Dosage: 3 DF, 2X/DAY (CYCLIC EVERY 12 HOURS)
     Route: 042
     Dates: start: 20200406, end: 20200407
  18. NICARDIPINE [Suspect]
     Active Substance: NICARDIPINE
     Indication: HYPERTENSION
     Dosage: 100 MG, 1X/DAY
     Route: 048
  19. FOLATE [Suspect]
     Active Substance: FOLATE SODIUM
     Indication: VITAMIN SUPPLEMENTATION
     Dosage: 5 MG, DAILY
     Route: 048
     Dates: start: 20200218, end: 20200430
  20. LOXEN L P [Concomitant]
     Active Substance: NICARDIPINE HYDROCHLORIDE
     Indication: HYPERTENSION
     Dosage: 100 MG, DAILY
     Route: 048
  21. ADVAGRAF [Concomitant]
     Active Substance: TACROLIMUS
     Indication: RENAL TRANSPLANT
     Dosage: UNK UNK, QD, 1 DF
     Route: 048
  22. LANTUS [Concomitant]
     Active Substance: INSULIN GLARGINE
     Indication: TYPE 2 DIABETES MELLITUS
     Dosage: UNK
     Route: 058
  23. ATENOLOL. [Suspect]
     Active Substance: ATENOLOL
     Indication: HYPERTENSION
     Dosage: 50 MG, DAILY
     Route: 048
  24. PREDNISONE. [Concomitant]
     Active Substance: PREDNISONE
     Indication: RENAL TRANSPLANT
     Dosage: 7.5 MILLIGRAM, QD
     Route: 048
  25. CORTANCYL [Suspect]
     Active Substance: PREDNISONE
     Indication: RENAL TRANSPLANT
     Dosage: 7.5 MG, DAILY
     Route: 048
  26. LANSOPRAZOLE. [Suspect]
     Active Substance: LANSOPRAZOLE
     Dosage: 4 DF, 1X/DAY
     Route: 048
     Dates: start: 20200405, end: 20200406

REACTIONS (4)
  - Hepatocellular injury [Not Recovered/Not Resolved]
  - Rash pustular [Recovered/Resolved]
  - Off label use [Unknown]
  - Cholestasis [Recovering/Resolving]

NARRATIVE: CASE EVENT DATE: 20200411
